FAERS Safety Report 20092753 (Version 1)
Quarter: 2021Q4

REPORT INFORMATION
  Report Type: Report from Study
  Country: US (occurrence: US)
  Receive Date: 20211120
  Receipt Date: 20211120
  Transmission Date: 20220303
  Serious: No
  Sender: FDA-Public Use
  Company Number: US-NOVARTISTESTPH-NVSC2021US264576

PATIENT
  Age: 58 Year
  Sex: Male

DRUGS (1)
  1. ENTRESTO [Suspect]
     Active Substance: SACUBITRIL\VALSARTAN
     Indication: Product used for unknown indication
     Dosage: 1 DF, BID(24.26 MG)
     Route: 048
     Dates: start: 20211007

REACTIONS (3)
  - Sleep apnoea syndrome [Unknown]
  - Weight decreased [Unknown]
  - Skin striae [Unknown]

NARRATIVE: CASE EVENT DATE: 20211001
